FAERS Safety Report 10210740 (Version 1)
Quarter: 2014Q2

REPORT INFORMATION
  Report Type: Report from Study
  Country: BR (occurrence: BR)
  Receive Date: 20140602
  Receipt Date: 20140602
  Transmission Date: 20141212
  Serious: Yes (Other)
  Sender: FDA-Public Use
  Company Number: PHHY2014BR063133

PATIENT
  Sex: Male
  Weight: 68 kg

DRUGS (2)
  1. SANDOSTATIN LAR [Suspect]
     Indication: ACROMEGALY
     Dosage: 30 MG, QMO
     Dates: start: 2011, end: 201310
  2. DOSTINEX [Suspect]
     Indication: ACROMEGALY
     Dosage: 2 DF (0.5 MG), QW
     Dates: start: 2010, end: 201310

REACTIONS (5)
  - Neoplasm [Unknown]
  - Blood growth hormone decreased [Unknown]
  - Insulin-like growth factor decreased [Unknown]
  - Glucose tolerance impaired [Unknown]
  - Weight decreased [Unknown]
